FAERS Safety Report 8424046-1 (Version None)
Quarter: 2012Q2

REPORT INFORMATION
  Report Type: 
  Country: None (occurrence: None)
  Receive Date: 20120608
  Receipt Date: 20111108
  Transmission Date: 20120825
  Serious: No
  Sender: FDA-Public Use
  Company Number: US-ASTRAZENECA-2011SE05411

PATIENT
  Age: 7 Year
  Sex: Female
  Weight: 31.2 kg

DRUGS (4)
  1. ADVAIR DISKUS 100/50 [Concomitant]
  2. PULMICORT FLEXHALER [Suspect]
     Indication: ASTHMA
     Route: 055
     Dates: start: 20110117, end: 20110101
  3. PULMICORT FLEXHALER [Suspect]
     Indication: BRONCHITIS
     Route: 055
     Dates: start: 20110117, end: 20110101
  4. PULMICORT FLEXHALER [Suspect]
     Indication: CONDITION AGGRAVATED
     Route: 055
     Dates: start: 20110117, end: 20110101

REACTIONS (3)
  - NIGHTMARE [None]
  - SLEEP TERROR [None]
  - TREMOR [None]
